FAERS Safety Report 4714044-3 (Version None)
Quarter: 2005Q3

REPORT INFORMATION
  Report Type: 
  Country: None (occurrence: None)
  Receive Date: 20050713
  Receipt Date: 20050701
  Transmission Date: 20060218
  Serious: Yes (Death, Hospitalization)
  Sender: FDA-Public Use
  Company Number: 05-01-0040

PATIENT
  Age: 26 Year
  Sex: Female

DRUGS (3)
  1. CLOZAPINE [Suspect]
     Indication: BIPOLAR DISORDER
     Dosage: 200MG QHS ORAL
     Route: 048
     Dates: start: 20020901, end: 20041229
  2. BUSPAR [Concomitant]
  3. KLONOPIN [Concomitant]

REACTIONS (2)
  - ASTHMA [None]
  - PNEUMONIA [None]
